FAERS Safety Report 6200653-1 (Version None)
Quarter: 2009Q2

REPORT INFORMATION
  Report Type: 
  Country: None (occurrence: None)
  Receive Date: 20090522
  Receipt Date: 20080529
  Transmission Date: 20091009
  Serious: Yes (Hospitalization)
  Sender: FDA-Public Use
  Company Number: US-ALEXION-A200700090

PATIENT
  Sex: Female
  Weight: 68.934 kg

DRUGS (23)
  1. SOLIRIS [Suspect]
     Indication: PAROXYSMAL NOCTURNAL HAEMOGLOBINURIA
     Dosage: 600 MG, SINGLE
     Route: 042
     Dates: start: 20071026, end: 20071026
  2. SOLIRIS [Suspect]
     Dosage: 600 MG, SINGLE
     Route: 042
     Dates: start: 20071102, end: 20071102
  3. SOLIRIS [Suspect]
     Dosage: 600 MG, SINGLE
     Route: 042
     Dates: start: 20071109, end: 20071109
  4. SOLIRIS [Suspect]
     Dosage: 600 MG, SINGLE
     Route: 042
     Dates: start: 20071116, end: 20071116
  5. SOLIRIS [Suspect]
     Dosage: 600 MG, SINGLE
     Route: 042
     Dates: start: 20071123, end: 20071123
  6. SOLIRIS [Suspect]
     Dosage: 900 MG, SINGLE
     Route: 042
     Dates: start: 20071207, end: 20071207
  7. SOLIRIS [Suspect]
     Dosage: 900 MG, SINGLE
     Route: 042
     Dates: start: 20071221, end: 20071221
  8. SOLIRIS [Suspect]
     Dosage: 900 MG, SINGLE
     Route: 042
     Dates: start: 20080404, end: 20080404
  9. SOLIRIS [Suspect]
     Dosage: 900 MG, SINGLE
     Route: 042
     Dates: start: 20080414, end: 20080414
  10. SOLIRIS [Suspect]
     Dosage: 900 MG, SINGLE
     Route: 042
     Dates: start: 20080506, end: 20080506
  11. SOLIRIS [Suspect]
     Dosage: 900 MG, SINGLE
     Route: 042
     Dates: start: 20080520, end: 20080520
  12. BLOOD AND RELATED PRODUCTS [Concomitant]
     Indication: PAROXYSMAL NOCTURNAL HAEMOGLOBINURIA
     Dosage: MONTHLY
     Route: 042
  13. DILAUDID [Concomitant]
     Indication: PAIN
     Dosage: UNK, PRN
     Route: 048
  14. IBUPROFEN [Concomitant]
     Indication: PAIN
     Dosage: UNK, PRN
     Route: 048
  15. PROCRIT /00909301/ [Concomitant]
     Dosage: WEEKLY
     Route: 042
  16. FOLIC ACID [Concomitant]
     Indication: PAROXYSMAL NOCTURNAL HAEMOGLOBINURIA
     Dosage: UNK, QD
     Route: 048
  17. BENADRYL [Concomitant]
     Indication: PREMEDICATION
     Dosage: UNK, SINGLE
     Route: 048
     Dates: start: 20071026, end: 20071026
  18. BENADRYL [Concomitant]
     Dosage: UNK, SINGLE
     Route: 042
     Dates: start: 20071102, end: 20071102
  19. TYLENOL (CAPLET) [Concomitant]
     Indication: PREMEDICATION
     Dosage: UNK, SINGLE
     Route: 048
     Dates: start: 20071026, end: 20071026
  20. TYLENOL (CAPLET) [Concomitant]
     Dosage: UNK, SINGLE
     Route: 042
     Dates: start: 20071102, end: 20071102
  21. PHENERGAN HCL [Concomitant]
     Indication: PREMEDICATION
     Dosage: UNK, SINGLE
     Route: 042
     Dates: start: 20071102, end: 20071102
  22. HYDROCORTISONE [Concomitant]
     Indication: PREMEDICATION
     Dosage: UNK, SINGLE
     Route: 042
     Dates: start: 20071102, end: 20071102
  23. DECADRON [Concomitant]

REACTIONS (12)
  - BACK PAIN [None]
  - CHEST DISCOMFORT [None]
  - CHILLS [None]
  - DYSPNOEA [None]
  - HAEMOGLOBINURIA [None]
  - HEADACHE [None]
  - INFUSION RELATED REACTION [None]
  - NAUSEA [None]
  - PAIN [None]
  - PAIN IN EXTREMITY [None]
  - PYREXIA [None]
  - SINUSITIS [None]
